FAERS Safety Report 5579811-5 (Version None)
Quarter: 2008Q1

REPORT INFORMATION
  Report Type: 
  Country: None (occurrence: None)
  Receive Date: 20080102
  Receipt Date: 20071226
  Transmission Date: 20080703
  Serious: Yes (Hospitalization, Other)
  Sender: FDA-Public Use
  Company Number: US-PFIZER INC-2007043152

PATIENT
  Sex: Female

DRUGS (2)
  1. CELEBREX [Suspect]
     Indication: ARTHRITIS
  2. CELEBREX [Suspect]
     Indication: PAIN

REACTIONS (5)
  - ARTHRALGIA [None]
  - CEREBROVASCULAR DISORDER [None]
  - DRUG INEFFECTIVE [None]
  - FALL [None]
  - MYOCARDIAL INFARCTION [None]
